FAERS Safety Report 25557817 (Version 1)
Quarter: 2025Q3

REPORT INFORMATION
  Report Type: Spontaneous
  Country: EU (occurrence: EU)
  Receive Date: 20250715
  Receipt Date: 20250715
  Transmission Date: 20251020
  Serious: Yes (Life-Threatening, Other)
  Sender: DEXCEL LTD.
  Company Number: None

PATIENT
  Age: 84 Year
  Sex: Male

DRUGS (4)
  1. METRONIDAZOLE [Suspect]
     Active Substance: METRONIDAZOLE
     Dosage: 3 TIMES DAILY FOR ONE WEEK
  2. Ibuprofen STADA 600 mg Filmtabletten [Concomitant]
  3. CHLORHEXIDINE GLUCONATE [Suspect]
     Active Substance: CHLORHEXIDINE GLUCONATE
  4. CHLORHEXIDINE GLUCONATE [Suspect]
     Active Substance: CHLORHEXIDINE GLUCONATE

REACTIONS (13)
  - Cardiovascular disorder [Unknown]
  - Vertigo [Unknown]
  - Dermatitis acneiform [Unknown]
  - Erythema [Unknown]
  - Inflammation [Unknown]
  - Skin burning sensation [Unknown]
  - Sensitive skin [Unknown]
  - Anaphylactic shock [Recovered/Resolved]
  - Oral herpes [Unknown]
  - Dysphagia [Unknown]
  - Taste disorder [Unknown]
  - Product communication issue [Unknown]
  - Duplicate therapy error [Unknown]

NARRATIVE: CASE EVENT DATE: 20250501
